FAERS Safety Report 22609702 (Version 1)
Quarter: 2023Q2

REPORT INFORMATION
  Report Type: Spontaneous
  Country: AU (occurrence: AU)
  Receive Date: 20230616
  Receipt Date: 20230616
  Transmission Date: 20230721
  Serious: Yes (Other)
  Sender: FDA-Public Use
  Company Number: AU-Gedeon Richter Plc.-2023_GR_005459

PATIENT
  Age: 4 Decade
  Sex: Female

DRUGS (2)
  1. CARIPRAZINE [Suspect]
     Active Substance: CARIPRAZINE
     Indication: Product used for unknown indication
     Route: 065
  2. LITHIUM [Concomitant]
     Active Substance: LITHIUM
     Indication: Product used for unknown indication

REACTIONS (2)
  - Electrocardiogram QT prolonged [Recovered/Resolved]
  - Malaise [Unknown]
